FAERS Safety Report 5312080-X (Version None)
Quarter: 2007Q2

REPORT INFORMATION
  Report Type: 
  Country: None (occurrence: None)
  Receive Date: 20070430
  Receipt Date: 20060815
  Transmission Date: 20071010
  Serious: No
  Sender: FDA-Public Use
  Company Number: 2006UW16224

PATIENT
  Age: 74 Year
  Sex: Female
  Weight: 48.1 kg

DRUGS (2)
  1. NEXIUM [Suspect]
     Indication: THROAT IRRITATION
     Route: 048
     Dates: start: 20060804
  2. SYNTHROID [Concomitant]

REACTIONS (2)
  - PARAESTHESIA [None]
  - SNEEZING [None]
